FAERS Safety Report 9136182 (Version 1)
Quarter: 2013Q1

REPORT INFORMATION
  Report Type: Spontaneous
  Country: US (occurrence: US)
  Receive Date: 20130304
  Receipt Date: 20130304
  Transmission Date: 20140127
  Serious: No
  Sender: FDA-Public Use
  Company Number: US-ABBOTT-12P-163-1003930-00

PATIENT
  Age: 69 None
  Sex: Male
  Weight: 65.83 kg

DRUGS (2)
  1. ANDROGEL [Suspect]
     Indication: BLOOD TESTOSTERONE DECREASED
     Dosage: 2.5 GM PACKET
     Dates: start: 2010
  2. HYDROCHLOROTHIAZIDE [Concomitant]
     Indication: HYPERTENSION

REACTIONS (4)
  - Erectile dysfunction [Recovered/Resolved]
  - Drug ineffective [Recovered/Resolved]
  - Libido decreased [Recovered/Resolved]
  - Incorrect dose administered [Recovered/Resolved]
